FAERS Safety Report 20015418 (Version 1)
Quarter: 2021Q4

REPORT INFORMATION
  Report Type: Spontaneous
  Country: US (occurrence: None)
  Receive Date: 20211029
  Receipt Date: 20211029
  Transmission Date: 20220304
  Serious: Yes (Other)
  Sender: FDA-Public Use
  Company Number: None

PATIENT
  Age: 29 Year
  Sex: Male
  Weight: 109.57 kg

DRUGS (1)
  1. HIZENTRA [Suspect]
     Active Substance: HUMAN IMMUNOGLOBULIN G
     Indication: Immunodeficiency common variable
     Dosage: OTHER FREQUENCY : EVERY 7 DAYS;?
     Route: 058

REACTIONS (8)
  - Infusion related reaction [None]
  - Skin warm [None]
  - Hyperaesthesia [None]
  - Headache [None]
  - Diarrhoea [None]
  - Fatigue [None]
  - Petechiae [None]
  - Application site haemorrhage [None]

NARRATIVE: CASE EVENT DATE: 20211023
